FAERS Safety Report 5043299-3 (Version None)
Quarter: 2006Q3

REPORT INFORMATION
  Report Type: 
  Country: None (occurrence: None)
  Receive Date: 20060703
  Receipt Date: 20060703
  Transmission Date: 20061208
  Serious: Yes (Life-Threatening, Hospitalization)
  Sender: FDA-Public Use
  Company Number: None

PATIENT
  Age: 88 Year
  Sex: Male
  Weight: 54.4316 kg

DRUGS (2)
  1. ALEVE [Suspect]
     Indication: ANALGESIC EFFECT
     Dosage: 1 TABLET EVERY 24 HOUS PO
     Route: 048
     Dates: start: 20060617, end: 20060620
  2. ALEVE [Suspect]
     Indication: SPINAL COMPRESSION FRACTURE
     Dosage: 1 TABLET EVERY 24 HOUS PO
     Route: 048
     Dates: start: 20060617, end: 20060620

REACTIONS (5)
  - ASTHENIA [None]
  - DISORIENTATION [None]
  - HAEMATEMESIS [None]
  - NAUSEA [None]
  - ULCER HAEMORRHAGE [None]
